FAERS Safety Report 13554955 (Version 1)
Quarter: 2017Q2

REPORT INFORMATION
  Report Type: Not Available
  Country: US (occurrence: US)
  Receive Date: 20170517
  Receipt Date: 20170517
  Transmission Date: 20170830
  Serious: No
  Sender: FDA-Public Use
  Company Number: US-MEDIMETRIKS-2017-US-001235

PATIENT
  Age: 62 Year
  Sex: Male

DRUGS (1)
  1. FLUOCINOLONE ACETONIDE TOPICAL [Suspect]
     Active Substance: FLUOCINOLONE ACETONIDE
     Route: 065

REACTIONS (2)
  - Tremor [Unknown]
  - Muscle spasms [Unknown]
